FAERS Safety Report 12608665 (Version 2)
Quarter: 2016Q3

REPORT INFORMATION
  Report Type: Spontaneous
  Country: US (occurrence: US)
  Receive Date: 20160729
  Receipt Date: 20160901
  Transmission Date: 20161109
  Serious: Yes (Hospitalization)
  Sender: FDA-Public Use
  Company Number: US-RELYPSA-RLY2016001484

PATIENT
  Age: 71 Year
  Sex: Male

DRUGS (6)
  1. LEVOTHYROXINE SODIUM. [Concomitant]
     Active Substance: LEVOTHYROXINE SODIUM
  2. HUMULIN N [Concomitant]
     Active Substance: INSULIN HUMAN
  3. LASIX [Concomitant]
     Active Substance: FUROSEMIDE
  4. NIFEDIAC CC [Concomitant]
     Active Substance: NIFEDIPINE
  5. NEURONTIN [Concomitant]
     Active Substance: GABAPENTIN
  6. VELTASSA [Suspect]
     Active Substance: PATIROMER
     Indication: HYPERKALAEMIA
     Dosage: 8.4 G, QD
     Route: 048

REACTIONS (1)
  - Haemorrhage [Unknown]

NARRATIVE: CASE EVENT DATE: 20160708
